FAERS Safety Report 25035940 (Version 2)
Quarter: 2025Q3

REPORT INFORMATION
  Report Type: Spontaneous
  Country: CA (occurrence: CA)
  Receive Date: 20250304
  Receipt Date: 20250809
  Transmission Date: 20251021
  Serious: Yes (Other)
  Sender: ALEXION PHARMACEUTICALS
  Company Number: CA-HALEON-2229866

PATIENT
  Age: 41 Year
  Sex: Female

DRUGS (153)
  1. NEXIUM [Suspect]
     Active Substance: ESOMEPRAZOLE MAGNESIUM
     Route: 065
  2. PROPRANOLOL HYDROCHLORIDE [Suspect]
     Active Substance: PROPRANOLOL HYDROCHLORIDE
     Route: 065
  3. PROPRANOLOL HYDROCHLORIDE [Suspect]
     Active Substance: PROPRANOLOL HYDROCHLORIDE
     Route: 065
  4. PROPRANOLOL HYDROCHLORIDE [Suspect]
     Active Substance: PROPRANOLOL HYDROCHLORIDE
     Route: 065
  5. HYDROMORPHONE [Suspect]
     Active Substance: HYDROMORPHONE
     Indication: Migraine
     Route: 065
  6. HYDROMORPHONE [Suspect]
     Active Substance: HYDROMORPHONE
     Route: 065
  7. HYDROMORPHONE [Suspect]
     Active Substance: HYDROMORPHONE
     Route: 065
  8. HYDROMORPHONE [Suspect]
     Active Substance: HYDROMORPHONE
     Route: 065
  9. HYDROMORPHONE [Suspect]
     Active Substance: HYDROMORPHONE
     Route: 065
  10. HYDROMORPHONE [Suspect]
     Active Substance: HYDROMORPHONE
     Route: 065
  11. HYDROMORPHONE [Suspect]
     Active Substance: HYDROMORPHONE
     Route: 065
  12. HYDROMORPHONE [Suspect]
     Active Substance: HYDROMORPHONE
     Route: 065
  13. HYDROMORPHONE [Suspect]
     Active Substance: HYDROMORPHONE
     Route: 065
  14. HYDROMORPHONE [Suspect]
     Active Substance: HYDROMORPHONE
     Route: 065
  15. HYDROMORPHONE [Suspect]
     Active Substance: HYDROMORPHONE
     Route: 065
  16. INDOMETHACIN [Suspect]
     Active Substance: INDOMETHACIN
     Indication: Migraine
  17. INDOMETHACIN [Suspect]
     Active Substance: INDOMETHACIN
  18. INDOMETHACIN [Suspect]
     Active Substance: INDOMETHACIN
  19. INDOMETHACIN [Suspect]
     Active Substance: INDOMETHACIN
  20. INDOMETHACIN [Suspect]
     Active Substance: INDOMETHACIN
  21. INDOMETHACIN [Suspect]
     Active Substance: INDOMETHACIN
  22. INDOMETHACIN [Suspect]
     Active Substance: INDOMETHACIN
  23. INDOMETHACIN [Suspect]
     Active Substance: INDOMETHACIN
  24. INDOMETHACIN [Suspect]
     Active Substance: INDOMETHACIN
  25. INDOMETHACIN [Suspect]
     Active Substance: INDOMETHACIN
  26. INDOMETHACIN [Suspect]
     Active Substance: INDOMETHACIN
  27. INDOMETHACIN [Suspect]
     Active Substance: INDOMETHACIN
  28. INDOMETHACIN [Suspect]
     Active Substance: INDOMETHACIN
  29. INDOMETHACIN [Suspect]
     Active Substance: INDOMETHACIN
  30. INDOMETHACIN [Suspect]
     Active Substance: INDOMETHACIN
  31. INDOMETHACIN [Suspect]
     Active Substance: INDOMETHACIN
  32. INDOMETHACIN [Suspect]
     Active Substance: INDOMETHACIN
  33. INDOMETHACIN [Suspect]
     Active Substance: INDOMETHACIN
  34. INDOMETHACIN [Suspect]
     Active Substance: INDOMETHACIN
  35. INDOMETHACIN [Suspect]
     Active Substance: INDOMETHACIN
  36. INDOMETHACIN [Suspect]
     Active Substance: INDOMETHACIN
  37. INDOMETHACIN [Suspect]
     Active Substance: INDOMETHACIN
  38. INDOMETHACIN [Suspect]
     Active Substance: INDOMETHACIN
  39. INDOMETHACIN [Suspect]
     Active Substance: INDOMETHACIN
  40. INDOMETHACIN [Suspect]
     Active Substance: INDOMETHACIN
  41. INDOMETHACIN [Suspect]
     Active Substance: INDOMETHACIN
  42. INDOMETHACIN [Suspect]
     Active Substance: INDOMETHACIN
     Route: 065
  43. LANSOPRAZOLE [Suspect]
     Active Substance: LANSOPRAZOLE
     Indication: Migraine
     Route: 065
  44. MAXALT-MLT [Suspect]
     Active Substance: RIZATRIPTAN BENZOATE
     Indication: Migraine
     Route: 065
  45. MAXALT-MLT [Suspect]
     Active Substance: RIZATRIPTAN BENZOATE
     Route: 065
  46. MAXALT-MLT [Suspect]
     Active Substance: RIZATRIPTAN BENZOATE
     Route: 065
  47. METOCLOPRAMIDE [Suspect]
     Active Substance: METOCLOPRAMIDE
     Route: 065
  48. METOCLOPRAMIDE [Concomitant]
     Active Substance: METOCLOPRAMIDE
     Route: 065
  49. G-metronidazole [Concomitant]
     Route: 065
  50. MOMETASONE FUROATE [Suspect]
     Active Substance: MOMETASONE FUROATE
     Route: 065
  51. MOMETASONE FUROATE [Suspect]
     Active Substance: MOMETASONE FUROATE
     Route: 065
  52. MOMETASONE FUROATE [Suspect]
     Active Substance: MOMETASONE FUROATE
     Route: 065
  53. MOMETASONE FUROATE [Suspect]
     Active Substance: MOMETASONE FUROATE
     Route: 065
  54. TOPIRAMATE [Suspect]
     Active Substance: TOPIRAMATE
     Route: 065
  55. TOPIRAMATE [Suspect]
     Active Substance: TOPIRAMATE
     Route: 065
  56. TRAMADOL HYDROCHLORIDE [Suspect]
     Active Substance: TRAMADOL HYDROCHLORIDE
     Route: 065
  57. TRAMADOL HYDROCHLORIDE [Suspect]
     Active Substance: TRAMADOL HYDROCHLORIDE
     Route: 065
  58. TRIMETHOPRIM [Suspect]
     Active Substance: TRIMETHOPRIM
     Route: 065
  59. VENLAFAXINE HYDROCHLORIDE [Suspect]
     Active Substance: VENLAFAXINE HYDROCHLORIDE
     Route: 065
  60. ACETAMINOPHEN [Suspect]
     Active Substance: ACETAMINOPHEN
     Route: 065
  61. ACETAMINOPHEN [Suspect]
     Active Substance: ACETAMINOPHEN
     Route: 065
  62. AMOXICILLIN [Suspect]
     Active Substance: AMOXICILLIN
     Route: 065
  63. AMOXICILLIN [Suspect]
     Active Substance: AMOXICILLIN
     Route: 065
  64. AMOXICILLIN [Suspect]
     Active Substance: AMOXICILLIN
     Route: 065
  65. AZITHROMYCIN [Suspect]
     Active Substance: AZITHROMYCIN
     Route: 065
  66. AZITHROMYCIN [Suspect]
     Active Substance: AZITHROMYCIN
     Route: 065
  67. BOTULINUM TOXIN TYPE A [Suspect]
     Active Substance: BOTULINUM TOXIN TYPE A
     Route: 065
  68. BOTULINUM TOXIN TYPE A [Suspect]
     Active Substance: BOTULINUM TOXIN TYPE A
     Route: 065
  69. BOTULINUM TOXIN TYPE A [Suspect]
     Active Substance: BOTULINUM TOXIN TYPE A
     Route: 065
  70. BOTULINUM TOXIN TYPE A [Suspect]
     Active Substance: BOTULINUM TOXIN TYPE A
     Route: 065
  71. BOTULINUM TOXIN TYPE A [Suspect]
     Active Substance: BOTULINUM TOXIN TYPE A
     Route: 065
  72. BOTULINUM TOXIN TYPE A [Suspect]
     Active Substance: BOTULINUM TOXIN TYPE A
     Route: 065
  73. FLUCONAZOLE [Suspect]
     Active Substance: FLUCONAZOLE
     Route: 065
  74. CEFUROXIME [Concomitant]
     Active Substance: CEFUROXIME
     Route: 065
  75. CEPHALEXIN [Concomitant]
     Active Substance: CEPHALEXIN
     Route: 065
  76. CIPROFLOXACIN [Suspect]
     Active Substance: CIPROFLOXACIN
     Route: 065
  77. CIPROFLOXACIN [Suspect]
     Active Substance: CIPROFLOXACIN
     Dosage: THERAPY DURATION 152.0 DAYS
     Route: 065
  78. CIPROFLOXACIN [Suspect]
     Active Substance: CIPROFLOXACIN
     Route: 065
  79. CIPROFLOXACIN [Suspect]
     Active Substance: CIPROFLOXACIN
     Route: 065
  80. CLARITHROMYCIN [Suspect]
     Active Substance: CLARITHROMYCIN
     Route: 065
  81. CLARITHROMYCIN [Suspect]
     Active Substance: CLARITHROMYCIN
     Route: 065
  82. ASPIRIN\CAFFEINE\CODEINE PHOSPHATE [Suspect]
     Active Substance: ASPIRIN\CAFFEINE\CODEINE PHOSPHATE
     Indication: Migraine
     Route: 065
  83. ASPIRIN\CAFFEINE\CODEINE PHOSPHATE [Suspect]
     Active Substance: ASPIRIN\CAFFEINE\CODEINE PHOSPHATE
     Route: 065
  84. DANAZOL [Concomitant]
     Active Substance: DANAZOL
     Route: 065
  85. CYMBALTA [Concomitant]
     Active Substance: DULOXETINE HYDROCHLORIDE
     Route: 065
  86. DEXAMETHASONE [Suspect]
     Active Substance: DEXAMETHASONE
     Route: 065
  87. DEXAMETHASONE [Suspect]
     Active Substance: DEXAMETHASONE
     Route: 065
  88. DULOXETINE HYDROCHLORIDE [Suspect]
     Active Substance: DULOXETINE HYDROCHLORIDE
     Route: 065
  89. DULOXETINE HYDROCHLORIDE [Suspect]
     Active Substance: DULOXETINE HYDROCHLORIDE
     Route: 065
  90. ESCITALOPRAM OXALATE [Suspect]
     Active Substance: ESCITALOPRAM OXALATE
     Route: 065
  91. Aloe vera;Calcium phosphate dibasic;Ferrous fumarate;Magnesium oxide;R [Concomitant]
     Route: 065
  92. Fluoxetine aurobindo [Concomitant]
     Route: 065
  93. FLUTICASONE [Concomitant]
     Active Substance: FLUTICASONE
     Route: 065
  94. FROVATRIPTAN [Concomitant]
     Active Substance: FROVATRIPTAN
     Route: 065
  95. Macrogol;Macrogol 3350 [Concomitant]
     Route: 065
  96. MORPHINE SULFATE [Concomitant]
     Active Substance: MORPHINE SULFATE
     Route: 065
  97. NAPROXEN [Concomitant]
     Active Substance: NAPROXEN
     Route: 065
  98. Nitrofurantoin dak [Concomitant]
     Route: 065
  99. OSELTAMIVIR [Concomitant]
     Active Substance: OSELTAMIVIR
     Route: 065
  100. PANTOPRAZOLE SODIUM [Concomitant]
     Active Substance: PANTOPRAZOLE SODIUM
     Route: 065
  101. PREDNISONE [Suspect]
     Active Substance: PREDNISONE
     Route: 065
  102. PREDNISONE [Suspect]
     Active Substance: PREDNISONE
     Dosage: THERAPY DURATION 1 DAYS
     Route: 065
  103. RABEPRAZOLE SODIUM [Suspect]
     Active Substance: RABEPRAZOLE SODIUM
     Indication: Migraine
     Route: 065
  104. RABEPRAZOLE SODIUM [Suspect]
     Active Substance: RABEPRAZOLE SODIUM
     Route: 065
  105. RABEPRAZOLE SODIUM [Suspect]
     Active Substance: RABEPRAZOLE SODIUM
     Route: 065
  106. RABEPRAZOLE SODIUM [Suspect]
     Active Substance: RABEPRAZOLE SODIUM
     Route: 065
  107. RABEPRAZOLE SODIUM [Suspect]
     Active Substance: RABEPRAZOLE SODIUM
     Route: 065
  108. RABEPRAZOLE SODIUM [Suspect]
     Active Substance: RABEPRAZOLE SODIUM
     Route: 065
  109. RABEPRAZOLE SODIUM [Suspect]
     Active Substance: RABEPRAZOLE SODIUM
     Route: 065
  110. RABEPRAZOLE SODIUM [Suspect]
     Active Substance: RABEPRAZOLE SODIUM
     Route: 065
  111. RABEPRAZOLE SODIUM [Suspect]
     Active Substance: RABEPRAZOLE SODIUM
     Route: 065
  112. RABEPRAZOLE SODIUM [Suspect]
     Active Substance: RABEPRAZOLE SODIUM
     Route: 065
  113. RABEPRAZOLE SODIUM [Suspect]
     Active Substance: RABEPRAZOLE SODIUM
     Route: 065
  114. RABEPRAZOLE SODIUM [Suspect]
     Active Substance: RABEPRAZOLE SODIUM
     Route: 065
  115. RABEPRAZOLE SODIUM [Suspect]
     Active Substance: RABEPRAZOLE SODIUM
     Route: 065
  116. RABEPRAZOLE SODIUM [Suspect]
     Active Substance: RABEPRAZOLE SODIUM
     Route: 065
  117. RABEPRAZOLE SODIUM [Suspect]
     Active Substance: RABEPRAZOLE SODIUM
     Route: 065
  118. RABEPRAZOLE SODIUM [Suspect]
     Active Substance: RABEPRAZOLE SODIUM
     Route: 065
  119. RABEPRAZOLE SODIUM [Suspect]
     Active Substance: RABEPRAZOLE SODIUM
     Route: 065
  120. RABEPRAZOLE SODIUM [Suspect]
     Active Substance: RABEPRAZOLE SODIUM
     Route: 065
  121. RABEPRAZOLE SODIUM [Suspect]
     Active Substance: RABEPRAZOLE SODIUM
     Route: 065
  122. ALBUTEROL [Suspect]
     Active Substance: ALBUTEROL
     Route: 065
  123. ALBUTEROL [Suspect]
     Active Substance: ALBUTEROL
     Route: 065
  124. SCOPOLAMINE HYDROBROMIDE [Suspect]
     Active Substance: SCOPOLAMINE HYDROBROMIDE
     Indication: Migraine
     Route: 065
  125. SERTRALINE HYDROCHLORIDE [Suspect]
     Active Substance: SERTRALINE HYDROCHLORIDE
     Route: 065
  126. SERTRALINE HYDROCHLORIDE [Suspect]
     Active Substance: SERTRALINE HYDROCHLORIDE
     Route: 065
  127. Belladonna, sulfamethoxazole and trimethoprim [Concomitant]
     Route: 065
  128. SUMATRIPTAN [Suspect]
     Active Substance: SUMATRIPTAN
     Indication: Migraine
     Route: 065
  129. SUMATRIPTAN [Suspect]
     Active Substance: SUMATRIPTAN
     Route: 065
  130. SUMATRIPTAN [Suspect]
     Active Substance: SUMATRIPTAN
     Route: 065
  131. ZESTRIL [Suspect]
     Active Substance: LISINOPRIL
     Dosage: THERAPY DURATION 152.0 DAYS
  132. ZESTRIL [Suspect]
     Active Substance: LISINOPRIL
     Route: 065
  133. ZESTRIL [Suspect]
     Active Substance: LISINOPRIL
     Dosage: THERAPY DURATION 54.0 DAYS
  134. ZOLMITRIPTAN [Suspect]
     Active Substance: ZOLMITRIPTAN
     Route: 065
  135. ZOPICLONE [Suspect]
     Active Substance: ZOPICLONE
     Indication: Migraine
     Dosage: THERAPY DURATION 141.0 DAYS
     Route: 065
  136. ZOPICLONE [Suspect]
     Active Substance: ZOPICLONE
     Dosage: THERAPY DURATION 56.0 DAYS
     Route: 065
  137. ZOPICLONE [Suspect]
     Active Substance: ZOPICLONE
     Dosage: THERAPY DURATION 58.0 DAYS
     Route: 065
  138. ZOPICLONE [Suspect]
     Active Substance: ZOPICLONE
     Route: 065
  139. ZOPICLONE [Suspect]
     Active Substance: ZOPICLONE
     Dosage: THERAPY DURATION 45.0 DAYS
     Route: 065
  140. ZOPICLONE [Suspect]
     Active Substance: ZOPICLONE
     Dosage: THERAPY DURATION 1.0 DAYS
     Route: 065
  141. ZOPICLONE [Suspect]
     Active Substance: ZOPICLONE
     Dosage: THERAPY DURATION 94.0 DAYS
     Route: 065
  142. ZOPICLONE [Suspect]
     Active Substance: ZOPICLONE
     Dosage: THERAPY DURATION 52.0 DAYS
     Route: 065
  143. ZOPICLONE [Suspect]
     Active Substance: ZOPICLONE
     Dosage: THERAPY DURATION 53.0 DAYS
     Route: 065
  144. ZOPICLONE [Suspect]
     Active Substance: ZOPICLONE
     Dosage: THERAPY DURATION 73.0 DAYS
     Route: 065
  145. ZOPICLONE [Suspect]
     Active Substance: ZOPICLONE
     Dosage: THERAPY DURATION 47.0 DAYS
     Route: 065
  146. ZOPICLONE [Suspect]
     Active Substance: ZOPICLONE
     Dosage: THERAPY DURATION 59.0 DAYS
     Route: 065
  147. ZOPICLONE [Suspect]
     Active Substance: ZOPICLONE
     Route: 065
  148. ZOPICLONE [Suspect]
     Active Substance: ZOPICLONE
     Route: 065
  149. ZOPICLONE [Suspect]
     Active Substance: ZOPICLONE
     Dosage: THERAPY DURATION 67.0 DAYS
     Route: 065
  150. ZOPICLONE [Suspect]
     Active Substance: ZOPICLONE
     Dosage: THERAPY DURATION 83.0 DAYS
     Route: 065
  151. ZOPICLONE [Suspect]
     Active Substance: ZOPICLONE
     Dosage: THERAPY DURATION 61.0 DAYS
     Route: 065
  152. ZOPICLONE [Suspect]
     Active Substance: ZOPICLONE
     Dosage: THERAPY DURATION 62.0 DAYS
     Route: 065
  153. ZOPICLONE [Suspect]
     Active Substance: ZOPICLONE
     Dosage: THERAPY DURATION 58.0 DAYS
     Route: 065

REACTIONS (9)
  - Angioedema [Unknown]
  - Swollen tongue [Unknown]
  - Hypersensitivity [Unknown]
  - Drug ineffective for unapproved indication [Unknown]
  - Dysphonia [Unknown]
  - Drug intolerance [Unknown]
  - Headache [Unknown]
  - Off label use [Unknown]
  - Swelling face [Unknown]
